FAERS Safety Report 6001195-9 (Version None)
Quarter: 2008Q4

REPORT INFORMATION
  Report Type: 
  Country: None (occurrence: None)
  Receive Date: 20081215
  Receipt Date: 20081202
  Transmission Date: 20090506
  Serious: Yes (Life-Threatening)
  Sender: FDA-Public Use
  Company Number: GB-ELI_LILLY_AND_COMPANY-GB200812000521

PATIENT
  Age: 38 Year
  Sex: Male
  Weight: 82 kg

DRUGS (5)
  1. OLANZAPINE [Suspect]
     Indication: PERSONALITY DISORDER
     Dosage: 15 MG, UNK
     Route: 048
     Dates: start: 20020101, end: 20080801
  2. COCAINE [Concomitant]
     Indication: DEPENDENCE
     Dosage: 1 D/F, 2/W
     Route: 042
     Dates: start: 19960101, end: 20080701
  3. HEROIN [Concomitant]
     Indication: DEPENDENCE
     Dosage: 1 D/F, 2/W
     Route: 042
     Dates: start: 19900101, end: 20080701
  4. METHADONE HCL [Concomitant]
     Indication: DEPENDENCE
     Dosage: 110 MG, UNK
     Route: 048
     Dates: start: 20000101
  5. THIAMINE HCL [Concomitant]
     Indication: ALCOHOLISM
     Dosage: 100 MG, UNK
     Route: 048
     Dates: start: 20080624, end: 20080811

REACTIONS (1)
  - NEUTROPENIA [None]
